FAERS Safety Report 12211183 (Version 2)
Quarter: 2016Q2

REPORT INFORMATION
  Report Type: Spontaneous
  Country: IT (occurrence: IT)
  Receive Date: 20160325
  Receipt Date: 20160407
  Transmission Date: 20160815
  Serious: Yes (Other)
  Sender: FDA-Public Use
  Company Number: IT-ROCHE-1731072

PATIENT
  Age: 64 Year
  Sex: Female

DRUGS (4)
  1. PERJETA [Suspect]
     Active Substance: PERTUZUMAB
     Indication: BREAST CANCER
     Dosage: (420 MG VIAL GLASS 30 MG/ML 1 VIAL)?LAST DOSE PRIO TO SAE: 18/JAN/2016
     Route: 042
     Dates: start: 20150115
  2. FASLODEX [Concomitant]
     Active Substance: FULVESTRANT
     Indication: BREAST CANCER
     Dosage: 250 MG/5 ML 2 PREFILLED SYRINGES + 2 SAFETY NEEDLE
     Route: 030
  3. HERCEPTIN [Suspect]
     Active Substance: TRASTUZUMAB
     Indication: BREAST CANCER
     Dosage: 150 MG 1 VIAL FOR INTRAVENOUS USE?LAST DOSE PRIOR TO SAE: 18/JAN/2016
     Route: 042
     Dates: start: 20150115
  4. LETROZOLE. [Concomitant]
     Active Substance: LETROZOLE
     Indication: BREAST CANCER
     Dosage: 2.5 MG 30 TABLETS IN PVC/AL BLISTER PACK
     Route: 048

REACTIONS (3)
  - Arrhythmia [Unknown]
  - Ejection fraction decreased [Unknown]
  - Dyspnoea [Unknown]

NARRATIVE: CASE EVENT DATE: 20160203
